FAERS Safety Report 4565077-1 (Version None)
Quarter: 2005Q1

REPORT INFORMATION
  Report Type: 
  Country: None (occurrence: None)
  Receive Date: 20050131
  Receipt Date: 20050114
  Transmission Date: 20050727
  Serious: Yes (Hospitalization)
  Sender: FDA-Public Use
  Company Number: CH-BRISTOL-MYERS SQUIBB COMPANY-12824660

PATIENT
  Age: 67 Year
  Sex: Male

DRUGS (2)
  1. REYATAZ [Suspect]
     Indication: HIV INFECTION
     Dosage: 2 X 400 MG/D
     Route: 048
     Dates: start: 20040501
  2. NEVIRAPINE [Concomitant]
     Indication: HIV INFECTION
     Dosage: 2 X 200 MG/D
     Dates: start: 20040501

REACTIONS (2)
  - GENERAL PHYSICAL CONDITION ABNORMAL [None]
  - HAEMOGLOBIN DECREASED [None]
